FAERS Safety Report 24193991 (Version 3)
Quarter: 2024Q3

REPORT INFORMATION
  Report Type: Spontaneous
  Country: JP (occurrence: JP)
  Receive Date: 20240809
  Receipt Date: 20240903
  Transmission Date: 20241017
  Serious: Yes (Other)
  Sender: REGENERON
  Company Number: JP-BAYER-2024A105602

PATIENT
  Age: 83 Year
  Sex: Male

DRUGS (2)
  1. EYLEA [Suspect]
     Active Substance: AFLIBERCEPT
     Indication: Age-related macular degeneration
     Dosage: UNK, ONCE, LEFT EYE SOL FOR INJ IN PRE-FILLED SYR, 40 MG/ML
     Route: 031
     Dates: start: 20240706, end: 20240706
  2. EYLEA [Suspect]
     Active Substance: AFLIBERCEPT
     Dosage: UNK, ONCE, LEFT EYE, SOL FOR INJ IN PRE-FILLED SYR, 40 MG/ML
     Route: 031
     Dates: start: 20240803, end: 20240803

REACTIONS (3)
  - Retinal haemorrhage [Not Recovered/Not Resolved]
  - Device leakage [Unknown]
  - Incorrect dose administered [Unknown]

NARRATIVE: CASE EVENT DATE: 20240803
